FAERS Safety Report 4422250-0 (Version None)
Quarter: 2004Q3

REPORT INFORMATION
  Report Type: 
  Country: None (occurrence: None)
  Receive Date: 20040712
  Receipt Date: 20040225
  Transmission Date: 20050211
  Serious: Yes (Hospitalization)
  Sender: FDA-Public Use
  Company Number: TAP2004Q00241

PATIENT
  Age: 57 Year
  Sex: Female

DRUGS (4)
  1. PREVACID [Suspect]
     Indication: GASTROOESOPHAGEAL REFLUX DISEASE
     Dosage: 15 MG, 2 IN 1 D, PER ORAL
     Route: 048
     Dates: start: 20020930, end: 20021001
  2. PRILOSEC [Suspect]
     Indication: HYPERCHLORHYDRIA
     Dates: start: 20040101
  3. SYNTHROID (LEVOTHYROXINE SODIUM0 [Concomitant]
  4. XANAX [Concomitant]

REACTIONS (2)
  - GASTROINTESTINAL PAIN [None]
  - INCISION SITE ABSCESS [None]
